FAERS Safety Report 6927581-8 (Version None)
Quarter: 2010Q3

REPORT INFORMATION
  Report Type: 
  Country: None (occurrence: None)
  Receive Date: 20100817
  Receipt Date: 20100809
  Transmission Date: 20110219
  Serious: Yes (Hospitalization)
  Sender: FDA-Public Use
  Company Number: US-SANOFI-AVENTIS-2010SA041002

PATIENT
  Sex: Male

DRUGS (12)
  1. OXALIPLATIN [Suspect]
     Indication: COLORECTAL CANCER METASTATIC
     Route: 042
  2. INVESTIGATIONAL DRUG [Suspect]
     Indication: COLORECTAL CANCER METASTATIC
     Route: 048
     Dates: start: 20100503
  3. CETUXIMAB [Suspect]
     Indication: COLORECTAL CANCER METASTATIC
     Route: 042
  4. FOLINIC ACID [Suspect]
     Indication: COLORECTAL CANCER METASTATIC
     Route: 042
  5. FLUOROURACIL [Suspect]
     Indication: COLORECTAL CANCER METASTATIC
     Route: 042
  6. HYDRALAZINE [Concomitant]
  7. MAGNESIUM [Concomitant]
  8. AMLODIPINE BESYLATE [Concomitant]
  9. AMBIEN [Concomitant]
  10. ALTACE [Concomitant]
  11. CARVEDILOL [Concomitant]
  12. DIGOXIN [Concomitant]

REACTIONS (3)
  - CARDIOMYOPATHY [None]
  - DYSPNOEA [None]
  - RENAL FAILURE ACUTE [None]
